FAERS Safety Report 17544563 (Version 2)
Quarter: 2020Q3

REPORT INFORMATION
  Report Type: Spontaneous
  Country: DE (occurrence: DE)
  Receive Date: 20200316
  Receipt Date: 20200701
  Transmission Date: 20201102
  Serious: Yes (Life-Threatening, Other)
  Sender: FDA-Public Use
  Company Number: DE-PFIZER INC-2020105958

PATIENT
  Sex: Male
  Weight: 3.05 kg

DRUGS (2)
  1. CYTOTEC [Suspect]
     Active Substance: MISOPROSTOL
     Indication: LABOUR INDUCTION
     Dosage: UNK
     Route: 064
     Dates: start: 20140531, end: 20140601
  2. CYTOTEC [Suspect]
     Active Substance: MISOPROSTOL
     Indication: AMNIOTIC FLUID VOLUME DECREASED

REACTIONS (3)
  - Foetal exposure during delivery [Unknown]
  - Foetal monitoring abnormal [Recovered/Resolved]
  - Neonatal hypoxia [Recovered/Resolved]

NARRATIVE: CASE EVENT DATE: 20140531
